FAERS Safety Report 12805463 (Version 1)
Quarter: 2016Q4

REPORT INFORMATION
  Report Type: Spontaneous
  Country: JP (occurrence: JP)
  Receive Date: 20161004
  Receipt Date: 20161004
  Transmission Date: 20170207
  Serious: Yes (Other)
  Sender: FDA-Public Use
  Company Number: JP-SUN PHARMACEUTICAL INDUSTRIES LTD-2016RR-124841

PATIENT
  Age: 77 Year
  Sex: Female
  Weight: 44.6 kg

DRUGS (2)
  1. TS-1 [Suspect]
     Active Substance: GIMERACIL\OTERACIL\TEGAFUR
     Indication: PANCREATIC CARCINOMA METASTATIC
     Dosage: 80 MG/DAY, ON DAY 2-15, TWO WEEKS ADMINISTRATION, TWO WEEKS OFF
     Route: 065
  2. GEMCITABINE [Suspect]
     Active Substance: GEMCITABINE\GEMCITABINE HYDROCHLORIDE
     Indication: PANCREATIC CARCINOMA METASTATIC
     Dosage: 1200 MG/DAY, ON DAY 1, 15, TWO WEEKS ADMINISTRATION, TWO WEEKS OFF
     Route: 065

REACTIONS (2)
  - Thrombocytopenia [Unknown]
  - Leukopenia [Unknown]
